FAERS Safety Report 13554888 (Version 1)
Quarter: 2017Q2

REPORT INFORMATION
  Report Type: Spontaneous
  Country: US (occurrence: US)
  Receive Date: 20170517
  Receipt Date: 20170517
  Transmission Date: 20170830
  Serious: No
  Sender: FDA-Public Use
  Company Number: US-BAYER-2017-090422

PATIENT
  Age: 24 Year
  Sex: Female

DRUGS (1)
  1. MIRENA [Suspect]
     Active Substance: LEVONORGESTREL
     Dosage: 20 MCG/24HR, CONT
     Route: 015

REACTIONS (6)
  - Post-traumatic stress disorder [None]
  - Frustration tolerance decreased [None]
  - Feeling abnormal [None]
  - Procedural pain [None]
  - Complication of device removal [None]
  - Abdominal pain lower [Recovered/Resolved]
